FAERS Safety Report 6141809-6 (Version None)
Quarter: 2009Q2

REPORT INFORMATION
  Report Type: 
  Country: None (occurrence: None)
  Receive Date: 20090402
  Receipt Date: 20090204
  Transmission Date: 20091009
  Serious: Yes (Death, Other)
  Sender: FDA-Public Use
  Company Number: US-JNJFOC-20090201756

PATIENT
  Age: 90 Year
  Sex: Female
  Weight: 84.01 kg

DRUGS (6)
  1. LEVAQUIN [Suspect]
     Indication: PNEUMONIA
     Route: 042
  2. CLINDAMYCIN HCL [Concomitant]
     Indication: PNEUMONIA
     Route: 042
  3. ZOSYN [Concomitant]
     Indication: PNEUMONIA
     Route: 042
  4. TRAMADOL [Concomitant]
     Route: 065
  5. LASIX [Concomitant]
     Route: 065
  6. LISINOPRIL [Concomitant]
     Route: 065

REACTIONS (4)
  - BLOOD CREATININE INCREASED [None]
  - BLOOD UREA INCREASED [None]
  - CREATININE RENAL CLEARANCE DECREASED [None]
  - PNEUMONIA [None]
